FAERS Safety Report 19151161 (Version 7)
Quarter: 2021Q3

REPORT INFORMATION
  Report Type: Report from Study
  Country: None (occurrence: US)
  Receive Date: 20210419
  Receipt Date: 20210709
  Transmission Date: 20211014
  Serious: Yes (Death, Hospitalization, Other)
  Sender: FDA-Public Use
  Company Number: US-ABBVIE-21K-163-3858259-00

PATIENT
  Age: 75 Year
  Sex: Male

DRUGS (5)
  1. VENCLEXTA [Suspect]
     Active Substance: VENETOCLAX
     Dosage: 2 TABLETS
     Route: 048
     Dates: start: 20210406, end: 20210406
  2. VENCLEXTA [Suspect]
     Active Substance: VENETOCLAX
     Indication: ACUTE MYELOID LEUKAEMIA
     Route: 048
     Dates: start: 202103, end: 202104
  3. AZACITIDINE. [Concomitant]
     Active Substance: AZACITIDINE
     Indication: ACUTE MYELOID LEUKAEMIA
  4. VENCLEXTA [Suspect]
     Active Substance: VENETOCLAX
     Dosage: 1 TABLET
     Route: 048
     Dates: start: 20210405, end: 20210405
  5. VENCLEXTA [Suspect]
     Active Substance: VENETOCLAX
     Dosage: 4 TABLETS
     Route: 048
     Dates: start: 20210407, end: 20210507

REACTIONS (20)
  - Erythema [Unknown]
  - Weight decreased [Unknown]
  - Vomiting [Unknown]
  - Dyspnoea [Unknown]
  - Nausea [Unknown]
  - Chromaturia [Unknown]
  - Transfusion [Unknown]
  - Red blood cell count decreased [Unknown]
  - Platelet count decreased [Not Recovered/Not Resolved]
  - Hospitalisation [Unknown]
  - Arthralgia [Unknown]
  - Epistaxis [Unknown]
  - Hypophagia [Unknown]
  - Rash [Unknown]
  - Fall [Unknown]
  - Dysphagia [Unknown]
  - Acute myeloid leukaemia [Fatal]
  - Hospitalisation [Recovered/Resolved]
  - Haemoglobin decreased [Unknown]
  - Hospitalisation [Recovered/Resolved]

NARRATIVE: CASE EVENT DATE: 2021
